FAERS Safety Report 10204721 (Version 1)
Quarter: 2014Q2

REPORT INFORMATION
  Report Type: Spontaneous
  Country: JP (occurrence: JP)
  Receive Date: 20140529
  Receipt Date: 20140529
  Transmission Date: 20141212
  Serious: Yes (Death)
  Sender: FDA-Public Use
  Company Number: JP-GLAXOSMITHKLINE-B0996828A

PATIENT
  Age: 6 Day
  Sex: Male

DRUGS (1)
  1. FLOLAN [Suspect]
     Indication: PERSISTENT FOETAL CIRCULATION
     Route: 042
     Dates: start: 201404, end: 201404

REACTIONS (1)
  - Disease progression [Fatal]
